FAERS Safety Report 7060962-3 (Version None)
Quarter: 2010Q4

REPORT INFORMATION
  Report Type: 
  Country: None (occurrence: None)
  Receive Date: 20101026
  Receipt Date: 20101018
  Transmission Date: 20110411
  Serious: Yes (Hospitalization)
  Sender: FDA-Public Use
  Company Number: US-BIOGENIDEC-2010BI032932

PATIENT
  Age: 44 Year
  Sex: Male
  Weight: 103 kg

DRUGS (3)
  1. AVONEX [Suspect]
     Indication: MULTIPLE SCLEROSIS
     Route: 030
     Dates: start: 20091201
  2. LISINOPRIL [Concomitant]
     Indication: HYPERTENSION
     Route: 048
  3. LORTAB [Concomitant]
     Indication: PAIN
     Route: 048

REACTIONS (5)
  - DIVERTICULITIS [None]
  - INFLUENZA LIKE ILLNESS [None]
  - LARGE INTESTINE PERFORATION [None]
  - PROCEDURAL PAIN [None]
  - TYPE 2 DIABETES MELLITUS [None]
